FAERS Safety Report 20854889 (Version 1)
Quarter: 2022Q2

REPORT INFORMATION
  Report Type: Report from Study
  Country: FR (occurrence: FR)
  Receive Date: 20220520
  Receipt Date: 20220520
  Transmission Date: 20220721
  Serious: Yes (Death, Other)
  Sender: FDA-Public Use
  Company Number: FR-GLAXOSMITHKLINE-FR2020EME242060

PATIENT

DRUGS (16)
  1. BELANTAMAB MAFODOTIN [Suspect]
     Active Substance: BELANTAMAB MAFODOTIN
     Indication: Plasma cell myeloma
     Dosage: 2.5 MG/KG, CYC (ONCE OR EVERY 3 WEEKS)
     Route: 042
     Dates: start: 20201105
  2. BELANTAMAB MAFODOTIN [Suspect]
     Active Substance: BELANTAMAB MAFODOTIN
     Dosage: 2.5 MG/KG, CYC (ONCE OR EVERY 3 WEEKS)
     Route: 042
     Dates: start: 20201201, end: 20210108
  3. VELCADE [Concomitant]
     Active Substance: BORTEZOMIB
     Indication: Product used for unknown indication
     Dosage: UNK
     Dates: start: 201803, end: 201909
  4. ALKERAN [Concomitant]
     Active Substance: MELPHALAN
     Indication: Product used for unknown indication
     Dosage: UNK
     Dates: start: 201803, end: 201909
  5. ALKERAN [Concomitant]
     Active Substance: MELPHALAN
     Dosage: UNK
     Dates: start: 20210208
  6. PREDNISONE [Concomitant]
     Active Substance: PREDNISONE
     Indication: Product used for unknown indication
     Dosage: UNK
     Dates: start: 201803, end: 201909
  7. DARZALEX [Concomitant]
     Active Substance: DARATUMUMAB
     Indication: Product used for unknown indication
     Dosage: UNK
     Dates: start: 20200321
  8. REVLIMID [Concomitant]
     Active Substance: LENALIDOMIDE
     Indication: Product used for unknown indication
     Dosage: UNK
     Dates: start: 20200321
  9. DEXAMETHASONE [Concomitant]
     Active Substance: DEXAMETHASONE
     Indication: Product used for unknown indication
     Dosage: UNK
     Dates: start: 20200321
  10. DEXAMETHASONE [Concomitant]
     Active Substance: DEXAMETHASONE
     Dosage: UNK
     Dates: start: 20200623
  11. DEXAMETHASONE [Concomitant]
     Active Substance: DEXAMETHASONE
     Dosage: UNK
     Dates: start: 20200910
  12. POMALIDOMIDE [Concomitant]
     Active Substance: POMALIDOMIDE
     Indication: Product used for unknown indication
     Dosage: UNK
     Dates: start: 20200623
  13. POMALIDOMIDE [Concomitant]
     Active Substance: POMALIDOMIDE
     Dosage: UNK
     Dates: start: 20200910
  14. KYPROLIS [Concomitant]
     Active Substance: CARFILZOMIB
     Indication: Product used for unknown indication
     Dosage: UNK
     Dates: start: 20200623
  15. KYPROLIS [Concomitant]
     Active Substance: CARFILZOMIB
     Dosage: UNK
     Dates: start: 20200623
  16. NINLARO [Concomitant]
     Active Substance: IXAZOMIB CITRATE
     Indication: Product used for unknown indication
     Dosage: UNK
     Dates: start: 20200910

REACTIONS (5)
  - Death [Fatal]
  - Hydrocephalus [Unknown]
  - Punctate keratitis [Unknown]
  - Inappropriate schedule of product administration [Unknown]
  - Arthralgia [Unknown]

NARRATIVE: CASE EVENT DATE: 20201105
